FAERS Safety Report 8564024-5 (Version None)
Quarter: 2012Q3

REPORT INFORMATION
  Report Type: 
  Country: None (occurrence: None)
  Receive Date: 20120803
  Receipt Date: 20120802
  Transmission Date: 20120928
  Serious: Yes (Other)
  Sender: FDA-Public Use
  Company Number: PHHY2012CA029210

PATIENT
  Sex: Female

DRUGS (1)
  1. SANDOSTATIN LAR [Suspect]
     Indication: ACROMEGALY
     Dosage: 10 MG, EVERY 4 WEEKS
     Route: 030
     Dates: start: 20060530

REACTIONS (3)
  - SLEEP APNOEA SYNDROME [None]
  - MALAISE [None]
  - OEDEMA PERIPHERAL [None]
